FAERS Safety Report 6047973-1 (Version None)
Quarter: 2009Q1

REPORT INFORMATION
  Report Type: 
  Country: None (occurrence: None)
  Receive Date: 20090123
  Receipt Date: 20090114
  Transmission Date: 20090719
  Serious: Yes (Hospitalization)
  Sender: FDA-Public Use
  Company Number: PHHY2009FR01947

PATIENT
  Age: 73 Year
  Sex: Male

DRUGS (15)
  1. SANDIMMUNE [Interacting]
     Indication: BONE MARROW FAILURE
     Dosage: 100 MG/DAY
     Route: 042
     Dates: start: 20081031
  2. CORDARONE [Interacting]
     Indication: ATRIAL FIBRILLATION
     Dosage: UNK
     Route: 048
     Dates: start: 20080701
  3. CORDARONE [Interacting]
     Dosage: 200 MG, 6 DAILY DOSES
     Route: 048
     Dates: start: 20081012, end: 20081101
  4. CORDARONE [Interacting]
     Dosage: 150 MG/DAY
     Route: 048
     Dates: start: 20081101, end: 20081110
  5. NOXAFIL [Interacting]
     Dosage: 200 MG 3 DAILY DOSES
     Route: 048
     Dates: start: 20081023, end: 20081031
  6. HALDOL [Suspect]
     Dosage: 5 MD. 2 DOSES
     Route: 042
  7. ANTILYMPHOCYTE SERUM [Suspect]
     Dosage: 200 MG/DAY
     Dates: start: 20081028
  8. CORTICOSTEROIDS [Concomitant]
     Indication: SARCOIDOSIS
     Dosage: UNK
     Dates: start: 20080521
  9. RITUXIMAB [Concomitant]
     Dosage: UNK
     Dates: start: 20081023
  10. SOLU-MEDROL [Concomitant]
     Dosage: 50 MG/DAY
  11. POLARAMINE [Concomitant]
     Dosage: UNK
     Dates: start: 20081028
  12. LASILIX [Concomitant]
  13. MOPRAL [Concomitant]
  14. HEMIGOXINE [Concomitant]
  15. SOLUPRED [Concomitant]
     Dosage: 20 MG/DAY

REACTIONS (11)
  - ABDOMINAL PAIN [None]
  - AGITATION [None]
  - CONFUSIONAL STATE [None]
  - DELIRIUM [None]
  - DELUSION [None]
  - DRUG INTERACTION [None]
  - MESENTERIC VEIN THROMBOSIS [None]
  - NAUSEA [None]
  - PSYCHOTIC DISORDER [None]
  - SHOCK [None]
  - VOMITING [None]
